FAERS Safety Report 8470770-4 (Version None)
Quarter: 2012Q2

REPORT INFORMATION
  Report Type: 
  Country: None (occurrence: None)
  Receive Date: 20120627
  Receipt Date: 20120614
  Transmission Date: 20120825
  Serious: Yes (Hospitalization)
  Sender: FDA-Public Use
  Company Number: US-VIROPHARMA INCORPORATED-20120614CINRY3061

PATIENT
  Sex: Male

DRUGS (3)
  1. KALBITOR [Concomitant]
     Indication: HEREDITARY ANGIOEDEMA
     Dosage: UNKNOWN
     Route: 065
  2. BENICAR [Suspect]
     Indication: HYPERTENSION
     Route: 048
     Dates: start: 20120101, end: 20120501
  3. CINRYZE [Suspect]
     Indication: HEREDITARY ANGIOEDEMA
     Dates: start: 20110401

REACTIONS (3)
  - INAPPROPRIATE SCHEDULE OF DRUG ADMINISTRATION [None]
  - GASTROENTERITIS [None]
  - HEREDITARY ANGIOEDEMA [None]
